FAERS Safety Report 6078512-7 (Version None)
Quarter: 2009Q1

REPORT INFORMATION
  Report Type: 
  Country: None (occurrence: None)
  Receive Date: 20090211
  Receipt Date: 20090211
  Transmission Date: 20090719
  Serious: Yes (Hospitalization)
  Sender: FDA-Public Use
  Company Number: None

PATIENT
  Sex: Male
  Weight: 84.369 kg

DRUGS (4)
  1. BORTEZOMIB MILLENIUM [Suspect]
     Indication: ADENOID CYSTIC CARCINOMA
     Dosage: 1.3 MG/M2 TWICE WEEKLY IV BOLUS
     Route: 040
     Dates: start: 20081216, end: 20090205
  2. ADRIAMYCIN PFS [Suspect]
     Dosage: 20MG/ M2 ONCE WEEKLY IV BOLUS
     Route: 040
     Dates: start: 20081216, end: 20090205
  3. KYTRIL [Concomitant]
  4. COMPAZINE PRN [Concomitant]

REACTIONS (3)
  - DIARRHOEA [None]
  - DIZZINESS [None]
  - HYPOTENSION [None]
